FAERS Safety Report 7531765-8 (Version None)
Quarter: 2011Q2

REPORT INFORMATION
  Report Type: 
  Country: None (occurrence: None)
  Receive Date: 20110608
  Receipt Date: 20110601
  Transmission Date: 20111010
  Serious: Yes (Death)
  Sender: FDA-Public Use
  Company Number: JP-ROCHE-771605

PATIENT
  Sex: Male
  Weight: 73.3 kg

DRUGS (34)
  1. TOCILIZUMAB [Suspect]
     Indication: RHEUMATOID ARTHRITIS
     Route: 041
     Dates: start: 20090406, end: 20090406
  2. TOCILIZUMAB [Suspect]
     Route: 041
     Dates: start: 20090703, end: 20090703
  3. TOCILIZUMAB [Suspect]
     Route: 041
     Dates: start: 20091020, end: 20091020
  4. TOCILIZUMAB [Suspect]
     Route: 041
     Dates: start: 20100303, end: 20100303
  5. TOCILIZUMAB [Suspect]
     Route: 041
     Dates: start: 20110209, end: 20110209
  6. RHEUMATREX [Concomitant]
     Dosage: DOSE FORM: PERORAL AGENT
     Route: 048
     Dates: end: 20090508
  7. TOCILIZUMAB [Suspect]
     Route: 041
     Dates: start: 20090508, end: 20090508
  8. TOCILIZUMAB [Suspect]
     Route: 041
     Dates: start: 20090602, end: 20090602
  9. TOCILIZUMAB [Suspect]
     Route: 041
     Dates: start: 20100702, end: 20100702
  10. METHYCOBAL [Concomitant]
     Dosage: DOSE FORM: PERORAL AGENT
     Route: 048
     Dates: start: 20090205, end: 20110301
  11. TOCILIZUMAB [Suspect]
     Route: 041
     Dates: start: 20100727, end: 20100727
  12. TOCILIZUMAB [Suspect]
     Route: 041
     Dates: start: 20101116, end: 20101116
  13. BREDININ [Suspect]
     Indication: RHEUMATOID ARTHRITIS
     Dosage: DOSE FORM: PERORAL AGENT
     Route: 048
     Dates: start: 20090205, end: 20110301
  14. DIOVAN [Concomitant]
     Route: 048
  15. AMLODIPINE [Concomitant]
     Dosage: DOSE FORM: PERORAL AGENT
     Route: 048
  16. LANSOPRAZOLE [Concomitant]
     Dosage: DOSE FORM: PERORAL AGENT
     Route: 048
  17. TOCILIZUMAB [Suspect]
     Route: 041
     Dates: start: 20100601, end: 20100601
  18. PREDNISOLONE [Concomitant]
     Dosage: DOSE FORM: PERORAL AGENT
     Route: 048
     Dates: start: 20090205
  19. TOCILIZUMAB [Suspect]
     Route: 041
     Dates: start: 20100831, end: 20100831
  20. METHOTREXATE [Concomitant]
     Dosage: DOSE FORM: PERORAL AGENT
     Route: 048
     Dates: start: 20090509
  21. SELBEX [Concomitant]
     Route: 048
     Dates: start: 20090205, end: 20110301
  22. LIPITOR [Concomitant]
     Dosage: DOSE FORM: PERORAL AGENT
     Route: 048
  23. AMARYL [Concomitant]
     Dosage: DOSE FORM: PERORAL AGENT
     Route: 048
  24. TOCILIZUMAB [Suspect]
     Route: 041
     Dates: start: 20090807, end: 20090807
  25. TOCILIZUMAB [Suspect]
     Route: 041
     Dates: start: 20101214, end: 20101214
  26. RIMATIL [Suspect]
     Indication: RHEUMATOID ARTHRITIS
     Route: 048
     Dates: start: 20090205, end: 20110301
  27. FOLIC ACID [Concomitant]
     Dosage: DOSE FORM: PERORAL AGENT
     Route: 048
     Dates: start: 20090205
  28. ISONIAZID [Concomitant]
     Dosage: DOSE FORM: PERORAL AGENT
     Route: 048
     Dates: start: 20090317
  29. TOCILIZUMAB [Suspect]
     Route: 041
     Dates: start: 20091119, end: 20091119
  30. TOCILIZUMAB [Suspect]
     Route: 041
     Dates: start: 20091215, end: 20091215
  31. TOCILIZUMAB [Suspect]
     Route: 041
     Dates: start: 20110114, end: 20110114
  32. LENDORMIN [Concomitant]
     Dosage: DOSE FORM: PERORAL AGENT
     Route: 048
     Dates: start: 20090205, end: 20101214
  33. INFREE [Suspect]
     Indication: RHEUMATOID ARTHRITIS
     Route: 048
     Dates: start: 20090205, end: 20110301
  34. DOXAZOSIN MESYLATE [Concomitant]
     Dosage: DOSE FORM: PERORAL AGENT
     Route: 048

REACTIONS (5)
  - CEREBRAL THROMBOSIS [None]
  - DIARRHOEA [None]
  - BLOOD UREA INCREASED [None]
  - HEADACHE [None]
  - ECZEMA [None]
